FAERS Safety Report 19749489 (Version 1)
Quarter: 2021Q3

REPORT INFORMATION
  Report Type: Spontaneous
  Country: US (occurrence: US)
  Receive Date: 20210824
  Receipt Date: 20210824
  Transmission Date: 20211014
  Serious: No
  Sender: FDA-Public Use
  Company Number: None

PATIENT
  Age: 59 Year
  Sex: Female

DRUGS (1)
  1. ACTEMRA ACTPEN [Suspect]
     Active Substance: TOCILIZUMAB
     Indication: RHEUMATOID ARTHRITIS
     Dosage: DOSE OR AMOUNT: 1 PEN
     Route: 058
     Dates: start: 20190607

REACTIONS (2)
  - Tendon rupture [None]
  - Oedema peripheral [None]

NARRATIVE: CASE EVENT DATE: 20210803
